FAERS Safety Report 19208987 (Version 1)
Quarter: 2021Q2

REPORT INFORMATION
  Report Type: Spontaneous
  Country: DE (occurrence: DE)
  Receive Date: 20210504
  Receipt Date: 20210504
  Transmission Date: 20210717
  Serious: Yes (Other)
  Sender: FDA-Public Use
  Company Number: DE-JNJFOC-20210460780

PATIENT
  Age: 31 Year
  Sex: Male
  Weight: 83 kg

DRUGS (2)
  1. IMATINIB. [Interacting]
     Active Substance: IMATINIB MESYLATE
     Indication: CHRONIC MYELOID LEUKAEMIA
     Dosage: 400 MILLIGRAM, 1/DAY
     Route: 048
  2. TRAMADOL HYDROCHLORIDE. [Suspect]
     Active Substance: TRAMADOL HYDROCHLORIDE
     Indication: RIB FRACTURE
     Dosage: 4 DOSAGE FORM, 1/DAY
     Route: 048
     Dates: start: 20200401, end: 20200414

REACTIONS (2)
  - Drug interaction [Unknown]
  - Philadelphia chromosome positive [Recovering/Resolving]

NARRATIVE: CASE EVENT DATE: 20200519
